FAERS Safety Report 5752148-7 (Version None)
Quarter: 2008Q2

REPORT INFORMATION
  Report Type: 
  Country: None (occurrence: None)
  Receive Date: 20080529
  Receipt Date: 20080521
  Transmission Date: 20081010
  Serious: Yes (Other)
  Sender: FDA-Public Use
  Company Number: US-ASTRAZENECA-2008UW10479

PATIENT
  Age: 62 Year
  Sex: Female

DRUGS (9)
  1. NEXIUM [Suspect]
     Indication: GASTROOESOPHAGEAL REFLUX DISEASE
     Route: 048
     Dates: start: 20020101
  2. PROTONIX [Concomitant]
  3. AVASTIN [Concomitant]
  4. NORVASC [Concomitant]
  5. DIOVAN [Concomitant]
  6. ATIVAN [Concomitant]
  7. COUMADIN [Concomitant]
  8. SPIRIVA [Concomitant]
  9. COMBIVENT [Concomitant]

REACTIONS (2)
  - BREAST CANCER STAGE IV [None]
  - WEIGHT DECREASED [None]
